FAERS Safety Report 9221112 (Version 1)
Quarter: 2013Q2

REPORT INFORMATION
  Report Type: Spontaneous
  Country: SE (occurrence: SE)
  Receive Date: 20130409
  Receipt Date: 20130409
  Transmission Date: 20140414
  Serious: Yes (Other)
  Sender: FDA-Public Use
  Company Number: SE-WATSON-2013-06325

PATIENT
  Age: 9 Year
  Sex: Female

DRUGS (1)
  1. TRELSTAR (WATSON LABORATORIES) [Suspect]
     Indication: PRECOCIOUS PUBERTY
     Dosage: 3.75 MG, ONCE MONTHLY
     Route: 030
     Dates: start: 2011, end: 20130204

REACTIONS (1)
  - Henoch-Schonlein purpura [Not Recovered/Not Resolved]
